FAERS Safety Report 18330027 (Version 2)
Quarter: 2021Q2

REPORT INFORMATION
  Report Type: Spontaneous
  Country: DE (occurrence: DE)
  Receive Date: 20200930
  Receipt Date: 20210430
  Transmission Date: 20210717
  Serious: Yes (Life-Threatening, Hospitalization, Other)
  Sender: FDA-Public Use
  Company Number: DE-GLAXOSMITHKLINE-DE2020EME176622

PATIENT
  Age: 58 Year
  Sex: Female

DRUGS (8)
  1. BENLYSTA [Suspect]
     Active Substance: BELIMUMAB
     Indication: SYSTEMIC LUPUS ERYTHEMATOSUS
     Dosage: UNK
     Dates: start: 201601
  2. BENLYSTA [Suspect]
     Active Substance: BELIMUMAB
     Dosage: UNK
     Route: 058
     Dates: start: 201801
  3. RAMIPRIL. [Concomitant]
     Active Substance: RAMIPRIL
     Indication: HYPERTONIA
     Dosage: UNK, 2.5 MG
  4. PREDNISOLON [Concomitant]
     Active Substance: PREDNISOLONE
     Indication: SYSTEMIC LUPUS ERYTHEMATOSUS
     Dosage: 5 MG, 1D
     Dates: start: 1993
  5. MYCOPHENOLATE MOFETIL. [Concomitant]
     Active Substance: MYCOPHENOLATE MOFETIL
     Indication: IMMUNOSUPPRESSANT DRUG THERAPY
     Dosage: 360 MG, BID
     Dates: start: 201203, end: 201808
  6. CLOPIDOGREL [Concomitant]
     Active Substance: CLOPIDOGREL BISULFATE
     Indication: ANTIPHOSPHOLIPID SYNDROME
     Dosage: UNK, 75 MG
  7. AZATHIOPRINE. [Concomitant]
     Active Substance: AZATHIOPRINE
     Indication: IMMUNOSUPPRESSANT DRUG THERAPY
     Dosage: UNK NOT KNOWN
     Dates: start: 201202, end: 201203
  8. MYCOPHENOLATE MOFETIL. [Concomitant]
     Active Substance: MYCOPHENOLATE MOFETIL
     Dosage: 360 MG, 1D
     Dates: start: 201804, end: 201808

REACTIONS (20)
  - Cataract [Unknown]
  - Angioedema [Unknown]
  - Petechiae [Unknown]
  - Drug-induced liver injury [Unknown]
  - Leukaemia cutis [Unknown]
  - Haematoma [Unknown]
  - Dermatomyositis [Unknown]
  - Tendon rupture [Unknown]
  - Erythema [Unknown]
  - Periorbital swelling [Unknown]
  - Drug eruption [Unknown]
  - Neoplasm [Not Recovered/Not Resolved]
  - Staphylococcal infection [Unknown]
  - Infection [Unknown]
  - Acute myeloid leukaemia [Not Recovered/Not Resolved]
  - Neutropenia [Unknown]
  - Amputation [Unknown]
  - Osteopenia [Unknown]
  - Pyrexia [Unknown]
  - Iron deficiency anaemia [Unknown]

NARRATIVE: CASE EVENT DATE: 202008
